FAERS Safety Report 7546912-1 (Version None)
Quarter: 2011Q2

REPORT INFORMATION
  Report Type: 
  Country: None (occurrence: None)
  Receive Date: 20110614
  Receipt Date: 20110531
  Transmission Date: 20111010
  Serious: Yes (Hospitalization, Other)
  Sender: FDA-Public Use
  Company Number: US-MERCK-0912USA02580

PATIENT
  Age: 66 Year
  Sex: Female
  Weight: 89 kg

DRUGS (8)
  1. FOSAMAX [Suspect]
     Route: 048
  2. FOSAMAX [Suspect]
     Route: 048
     Dates: start: 19980529
  3. COUMADIN [Concomitant]
     Indication: FACTOR V LEIDEN MUTATION
     Route: 065
  4. FOSAMAX PLUS D [Suspect]
     Route: 048
     Dates: start: 20060517, end: 20071226
  5. FOSAMAX [Suspect]
     Route: 048
     Dates: start: 20080404, end: 20080927
  6. FOSAMAX [Suspect]
     Indication: OSTEOPOROSIS
     Route: 048
     Dates: start: 19950101, end: 20080901
  7. FOSAMAX [Suspect]
     Route: 048
  8. FOSAMAX [Suspect]
     Route: 048

REACTIONS (78)
  - CEREBROVASCULAR ACCIDENT [None]
  - OSTEOARTHRITIS [None]
  - INTERNATIONAL NORMALISED RATIO INCREASED [None]
  - DEEP VEIN THROMBOSIS [None]
  - SYNCOPE [None]
  - VASCULAR INSUFFICIENCY [None]
  - PANIC ATTACK [None]
  - MUSCLE SPASMS [None]
  - HYPERLIPIDAEMIA [None]
  - ARTHRITIS [None]
  - CARPAL TUNNEL SYNDROME [None]
  - CARDIAC FAILURE CONGESTIVE [None]
  - MENTAL STATUS CHANGES [None]
  - ARTHROPATHY [None]
  - TOXICITY TO VARIOUS AGENTS [None]
  - PAIN IN EXTREMITY [None]
  - OBESITY [None]
  - DYSPAREUNIA [None]
  - IMPAIRED HEALING [None]
  - CONSTIPATION [None]
  - HAEMATEMESIS [None]
  - HYPERTENSION [None]
  - ACUTE MYOCARDIAL INFARCTION [None]
  - ANXIETY [None]
  - INFLUENZA [None]
  - EXOSTOSIS [None]
  - ANAEMIA [None]
  - ILEUS [None]
  - ORAL CAVITY FISTULA [None]
  - MOUTH HAEMORRHAGE [None]
  - MITRAL VALVE INCOMPETENCE [None]
  - GASTRITIS [None]
  - INSOMNIA [None]
  - RESTLESS LEGS SYNDROME [None]
  - PERIPHERAL VASCULAR DISORDER [None]
  - OESTROGEN DEFICIENCY [None]
  - GALLBLADDER DISORDER [None]
  - DRUG HYPERSENSITIVITY [None]
  - CHEST PAIN [None]
  - DYSLIPIDAEMIA [None]
  - SECONDARY SEQUESTRUM [None]
  - OVERDOSE [None]
  - NON-CARDIAC CHEST PAIN [None]
  - DEVICE RELATED INFECTION [None]
  - JAUNDICE [None]
  - HYPOTHYROIDISM [None]
  - GASTROOESOPHAGEAL REFLUX DISEASE [None]
  - EAR PAIN [None]
  - ROTATOR CUFF SYNDROME [None]
  - VAGINAL DYSPLASIA [None]
  - CARDIAC DISORDER [None]
  - TOOTH LOSS [None]
  - TOOTH FRACTURE [None]
  - FOOT DEFORMITY [None]
  - GLAUCOMA [None]
  - OSTEONECROSIS OF JAW [None]
  - ADVERSE DRUG REACTION [None]
  - MEDICAL DEVICE COMPLICATION [None]
  - RECTOCELE [None]
  - OSTEOMYELITIS [None]
  - URINARY RETENTION [None]
  - DEPRESSION [None]
  - VARICOSE VEIN [None]
  - SMEAR CERVIX ABNORMAL [None]
  - INCORRECT DOSE ADMINISTERED [None]
  - CYSTOCELE [None]
  - JOINT DISLOCATION [None]
  - HYPOTENSION [None]
  - MUSCULOSKELETAL PAIN [None]
  - TOOTH DISORDER [None]
  - TACHYCARDIA [None]
  - SLEEP APNOEA SYNDROME [None]
  - UPPER GASTROINTESTINAL HAEMORRHAGE [None]
  - ABDOMINAL PAIN LOWER [None]
  - ARRHYTHMIA [None]
  - DIARRHOEA [None]
  - GROIN PAIN [None]
  - CELLULITIS [None]
